FAERS Safety Report 14750915 (Version 1)
Quarter: 2018Q2

REPORT INFORMATION
  Report Type: Spontaneous
  Country: US (occurrence: US)
  Receive Date: 20180412
  Receipt Date: 20180412
  Transmission Date: 20180711
  Serious: No
  Sender: FDA-Public Use
  Company Number: US-ASTRAZENECA-2018SE32784

PATIENT
  Sex: Female

DRUGS (1)
  1. PULMICORT FLEXHALER [Suspect]
     Active Substance: BUDESONIDE
     Dosage: 180.0UG AS REQUIRED
     Route: 055

REACTIONS (4)
  - Off label use [Unknown]
  - Condition aggravated [Not Recovered/Not Resolved]
  - Product use issue [Unknown]
  - Adverse event [Unknown]
